FAERS Safety Report 17638674 (Version 1)
Quarter: 2020Q2

REPORT INFORMATION
  Report Type: Spontaneous
  Country: GB (occurrence: GB)
  Receive Date: 20200407
  Receipt Date: 20200407
  Transmission Date: 20200713
  Serious: Yes (Other)
  Sender: FDA-Public Use
  Company Number: GB-TEVA-2020-GB-1219870

PATIENT
  Age: 57 Year
  Sex: Female
  Weight: 64 kg

DRUGS (6)
  1. RANITIDINE. [Concomitant]
     Active Substance: RANITIDINE
     Dosage: TAKE ONE OR TWO TWICE DAILY
     Dates: start: 20180604
  2. ESTRIOL [Concomitant]
     Active Substance: ESTRIOL
     Dosage: APPLY AT NIGHT
     Dates: start: 20180604
  3. CLENIL MODULITE [Concomitant]
     Active Substance: BECLOMETHASONE DIPROPIONATE
     Dosage: 4 DOSAGE FORMS
     Route: 055
     Dates: start: 20180604
  4. SALAMOL [Concomitant]
     Active Substance: ALBUTEROL
     Dosage: 2 DOSAGE FORMS
     Route: 055
     Dates: start: 20180604
  5. OMEPRAZOLE. [Suspect]
     Active Substance: OMEPRAZOLE
     Dosage: GASTRO-RESISTANT, 10 MG
     Dates: start: 20200320
  6. PANTOPRAZOLE [Concomitant]
     Active Substance: PANTOPRAZOLE
     Dosage: 1 DOSAGE FORMS
     Dates: start: 20200320

REACTIONS (1)
  - Depressed mood [Recovered/Resolved]

NARRATIVE: CASE EVENT DATE: 20200323
